FAERS Safety Report 9970075 (Version 1)
Quarter: 2014Q1

REPORT INFORMATION
  Report Type: Spontaneous
  Country: US (occurrence: None)
  Receive Date: 20140131
  Receipt Date: 20140131
  Transmission Date: 20141002
  Serious: Yes (Other)
  Sender: FDA-Public Use
  Company Number: 095505

PATIENT
  Sex: Female

DRUGS (1)
  1. KEPPRA [Suspect]
     Route: 048

REACTIONS (5)
  - Convulsion [None]
  - Confusional state [None]
  - Amnesia [None]
  - Inappropriate schedule of drug administration [None]
  - Drug ineffective [None]
